FAERS Safety Report 7972577-0 (Version None)
Quarter: 2011Q4

REPORT INFORMATION
  Report Type: 
  Country: None (occurrence: None)
  Receive Date: 20111213
  Receipt Date: 20111208
  Transmission Date: 20120403
  Serious: Yes (Death, Other)
  Sender: FDA-Public Use
  Company Number: BR-BAYER-2011-118397

PATIENT
  Age: 48 Year
  Sex: Male

DRUGS (1)
  1. INTERFERON BETA-1B [Suspect]
     Indication: PRODUCT USED FOR UNKNOWN INDICATION
     Dosage: 8 MIU, QOD
     Route: 058
     Dates: start: 20080101, end: 20111104

REACTIONS (6)
  - RENAL FAILURE [None]
  - HAEMODIALYSIS [None]
  - HYPERTENSION [None]
  - DIABETES MELLITUS [None]
  - RESPIRATORY ARREST [None]
  - CARDIAC ARREST [None]
